FAERS Safety Report 18632736 (Version 1)
Quarter: 2020Q4

REPORT INFORMATION
  Report Type: Spontaneous
  Country: FR (occurrence: FR)
  Receive Date: 20201218
  Receipt Date: 20201218
  Transmission Date: 20210114
  Serious: Yes (Hospitalization)
  Sender: FDA-Public Use
  Company Number: FR-ACCORD-211086

PATIENT
  Age: 64 Year
  Sex: Male
  Weight: 72.6 kg

DRUGS (6)
  1. GABAPENTIN. [Suspect]
     Active Substance: GABAPENTIN
     Indication: NEURALGIA
     Route: 048
     Dates: start: 2020
  2. BOTOX [Suspect]
     Active Substance: ONABOTULINUMTOXINA
     Indication: HEMIPLEGIA
     Route: 030
     Dates: start: 20201118, end: 20201118
  3. BACLOFEN. [Suspect]
     Active Substance: BACLOFEN
     Indication: HEMIPLEGIA
     Route: 048
     Dates: start: 202005
  4. FLUOXETINE [Suspect]
     Active Substance: FLUOXETINE HYDROCHLORIDE
     Indication: FLAT AFFECT
     Route: 048
     Dates: start: 202004
  5. XATRAL LP [Concomitant]
     Active Substance: ALFUZOSIN
     Route: 048
     Dates: start: 202009
  6. TAHOR [Concomitant]
     Active Substance: ATORVASTATIN CALCIUM
     Indication: PROPHYLAXIS
     Route: 048
     Dates: start: 202004

REACTIONS (1)
  - Status epilepticus [Recovering/Resolving]

NARRATIVE: CASE EVENT DATE: 20201119
